FAERS Safety Report 12440606 (Version 1)
Quarter: 2016Q2

REPORT INFORMATION
  Report Type: Spontaneous
  Country: AU (occurrence: AU)
  Receive Date: 20160606
  Receipt Date: 20160606
  Transmission Date: 20160815
  Serious: Yes (Other)
  Sender: FDA-Public Use
  Company Number: AU-BAUSCH-BL-2016-012926

PATIENT
  Age: 59 Year

DRUGS (2)
  1. RIBAVIRIN. [Suspect]
     Active Substance: RIBAVIRIN
     Indication: PRODUCT USED FOR UNKNOWN INDICATION
     Route: 065
  2. VIEKIRA PAK [Suspect]
     Active Substance: DASABUVIR\OMBITASVIR\PARITAPREVIR\RITONAVIR
     Indication: PRODUCT USED FOR UNKNOWN INDICATION
     Route: 065

REACTIONS (7)
  - Cushing^s syndrome [Unknown]
  - Adrenal suppression [Unknown]
  - Lethargy [Unknown]
  - Dyspnoea exertional [Unknown]
  - Feeling jittery [Unknown]
  - Blood cortisol decreased [Unknown]
  - Cortisol free urine decreased [Unknown]
